FAERS Safety Report 10204996 (Version 1)
Quarter: 2014Q2

REPORT INFORMATION
  Report Type: Spontaneous
  Country: IT (occurrence: IT)
  Receive Date: 20140529
  Receipt Date: 20140529
  Transmission Date: 20141212
  Serious: Yes (Other)
  Sender: FDA-Public Use
  Company Number: IT-TEVA-482925ISR

PATIENT
  Age: 68 Year
  Sex: Female
  Weight: 65 kg

DRUGS (2)
  1. ANASTRAZOLO TEVA 1 MG [Suspect]
     Indication: BREAST CANCER
     Dosage: 1 MILLIGRAM DAILY;
     Route: 048
     Dates: start: 20140110, end: 20140501
  2. INDERAL 40 MG [Concomitant]
     Route: 048

REACTIONS (3)
  - Arthralgia [Recovering/Resolving]
  - Hypertensive crisis [Recovering/Resolving]
  - Arthralgia [Recovering/Resolving]
